FAERS Safety Report 6762932 (Version 2)
Quarter: 2016Q4

REPORT INFORMATION
  Report Type: Spontaneous
  Country: US (occurrence: US)
  Receive Date: 20080918
  Receipt Date: 20161013
  Transmission Date: 20170207
  Serious: Yes (Death, Other)
  Sender: FDA-Public Use
  Company Number: US-ALLERGAN-0805471US

PATIENT
  Age: 13 Year
  Sex: Female
  Weight: 45.35 kg

DRUGS (2)
  1. BOTOX [Suspect]
     Active Substance: ONABOTULINUMTOXINA
     Indication: MUSCLE SPASTICITY
     Dosage: UNK, SINGLE
     Route: 030
  2. BACLOFEN. [Concomitant]
     Active Substance: BACLOFEN

REACTIONS (5)
  - Gastric hypomotility [Fatal]
  - Muscle atrophy [Unknown]
  - Speech disorder [Unknown]
  - Dyspnoea [Unknown]
  - Nervous system disorder [Fatal]

NARRATIVE: CASE EVENT DATE: 20051105
